FAERS Safety Report 8134005-4 (Version None)
Quarter: 2012Q1

REPORT INFORMATION
  Report Type: 
  Country: None (occurrence: None)
  Receive Date: 20120213
  Receipt Date: 20120203
  Transmission Date: 20120608
  Serious: Yes (Hospitalization)
  Sender: FDA-Public Use
  Company Number: US-ASTRAZENECA-2012SE08162

PATIENT
  Age: 75 Year
  Sex: Female

DRUGS (12)
  1. PRILOSEC OTC [Suspect]
     Dosage: ONE PILL ONCE A DAY
     Route: 048
  2. PLAVIX [Suspect]
  3. AMIODARONE [Concomitant]
  4. SINGULAIR [Concomitant]
  5. BENECA [Concomitant]
  6. CRESTOR [Concomitant]
  7. FIBRULATION MEDICATION [Concomitant]
  8. TOPRO [Concomitant]
  9. XANAX [Concomitant]
  10. VARIOUS ANTIBIOTICS [Concomitant]
  11. ASPIRIN [Suspect]
  12. DIGOXIN [Concomitant]

REACTIONS (2)
  - CEREBROVASCULAR ACCIDENT [None]
  - TRANSIENT ISCHAEMIC ATTACK [None]
